FAERS Safety Report 23110181 (Version 1)
Quarter: 2023Q4

REPORT INFORMATION
  Report Type: Spontaneous
  Country: CN (occurrence: CN)
  Receive Date: 20231026
  Receipt Date: 20231026
  Transmission Date: 20240110
  Serious: Yes (Other)
  Sender: FDA-Public Use
  Company Number: CN-ELI_LILLY_AND_COMPANY-CN202310011848

PATIENT
  Age: 86 Year
  Sex: Male
  Weight: 72 kg

DRUGS (4)
  1. BARICITINIB [Suspect]
     Active Substance: BARICITINIB
     Indication: Embolism venous
     Dosage: 4 MG, DAILY
     Route: 048
     Dates: start: 20230108, end: 20230123
  2. TENOFOVIR ALAFENAMIDE FUMARATE [Suspect]
     Active Substance: TENOFOVIR ALAFENAMIDE FUMARATE
     Indication: Chronic hepatitis B
     Dosage: 25 MG, DAILY
     Route: 048
     Dates: start: 20230114, end: 20230131
  3. FLUCONAZOLE [Suspect]
     Active Substance: FLUCONAZOLE
     Indication: Infection
     Dosage: 150 MG, DAILY
     Route: 048
     Dates: start: 20230117, end: 20230131
  4. MEROPENEM [Suspect]
     Active Substance: MEROPENEM
     Indication: Infection
     Dosage: 1000 MG, TID
     Route: 041
     Dates: start: 20230117, end: 20230121

REACTIONS (2)
  - Renal impairment [Recovering/Resolving]
  - Off label use [Unknown]

NARRATIVE: CASE EVENT DATE: 20230119
